FAERS Safety Report 9880362 (Version 2)
Quarter: 2014Q1

REPORT INFORMATION
  Report Type: Spontaneous
  Country: US (occurrence: US)
  Receive Date: 20140207
  Receipt Date: 20140210
  Transmission Date: 20141002
  Serious: No
  Sender: FDA-Public Use
  Company Number: US-009507513-1401USA013352

PATIENT
  Age: 18 Year
  Sex: Female
  Weight: 63.49 kg

DRUGS (3)
  1. NEXPLANON [Suspect]
     Indication: CONTRACEPTION
     Dosage: 1 ROD /3 YEARS
     Route: 059
     Dates: start: 20130327
  2. BIOTIN [Concomitant]
     Dosage: UNK
  3. CALCIUM (UNSPECIFIED) [Concomitant]
     Dosage: UNK

REACTIONS (5)
  - Thrombosis [Not Recovered/Not Resolved]
  - Menorrhagia [Not Recovered/Not Resolved]
  - Back pain [Not Recovered/Not Resolved]
  - Vaginal haemorrhage [Not Recovered/Not Resolved]
  - Metrorrhagia [Not Recovered/Not Resolved]
